FAERS Safety Report 20637640 (Version 2)
Quarter: 2022Q2

REPORT INFORMATION
  Report Type: Spontaneous
  Country: US (occurrence: US)
  Receive Date: 20220325
  Receipt Date: 20220420
  Transmission Date: 20220721
  Serious: No
  Sender: FDA-Public Use
  Company Number: US-TAKEDA-2022TUS019873

PATIENT
  Age: 9 Year
  Sex: Female

DRUGS (1)
  1. VYVANSE [Suspect]
     Active Substance: LISDEXAMFETAMINE DIMESYLATE
     Indication: Attention deficit hyperactivity disorder
     Dosage: 10 MILLIGRAM, QD
     Route: 048
     Dates: start: 20220226, end: 20220311

REACTIONS (4)
  - Mood swings [Recovered/Resolved]
  - Agitation [Unknown]
  - Therapy naive [Unknown]
  - Product administration error [Unknown]

NARRATIVE: CASE EVENT DATE: 20220227
